FAERS Safety Report 5353615-0 (Version None)
Quarter: 2007Q2

REPORT INFORMATION
  Report Type: 
  Country: None (occurrence: None)
  Receive Date: 20070612
  Receipt Date: 20070606
  Transmission Date: 20071010
  Serious: Yes (Other)
  Sender: FDA-Public Use
  Company Number: US-ASTRAZENECA-2007UW13684

PATIENT
  Age: 45 Year
  Sex: Female
  Weight: 49 kg

DRUGS (3)
  1. TAMOXIFEN CITRATE [Suspect]
     Indication: BREAST CANCER STAGE III
     Route: 048
     Dates: start: 20050101
  2. VALIUM [Concomitant]
  3. HYDROCODONE BITARTRATE [Concomitant]

REACTIONS (9)
  - ARTHRALGIA [None]
  - FACIAL SPASM [None]
  - HEADACHE [None]
  - INSOMNIA [None]
  - MUSCLE SPASMS [None]
  - MYALGIA [None]
  - NAUSEA [None]
  - OESOPHAGEAL SPASM [None]
  - TACHYCARDIA [None]
